FAERS Safety Report 13448646 (Version 2)
Quarter: 2017Q2

REPORT INFORMATION
  Report Type: Spontaneous
  Country: JP (occurrence: JP)
  Receive Date: 20170417
  Receipt Date: 20170523
  Transmission Date: 20170830
  Serious: Yes (Hospitalization)
  Sender: FDA-Public Use
  Company Number: JP-JNJFOC-20170415112

PATIENT
  Age: 67 Year
  Sex: Female

DRUGS (1)
  1. SIMPONI [Suspect]
     Active Substance: GOLIMUMAB
     Indication: RHEUMATOID ARTHRITIS
     Route: 058
     Dates: start: 20160120, end: 20160706

REACTIONS (3)
  - Osteoarthritis [Recovered/Resolved]
  - Pustular psoriasis [Recovered/Resolved]
  - Arteritis [Recovered/Resolved]

NARRATIVE: CASE EVENT DATE: 201605
